FAERS Safety Report 6395972-2 (Version None)
Quarter: 2009Q4

REPORT INFORMATION
  Report Type: 
  Country: None (occurrence: None)
  Receive Date: 20091009
  Receipt Date: 20091005
  Transmission Date: 20100525
  Serious: Yes (Life-Threatening, Hospitalization)
  Sender: FDA-Public Use
  Company Number: PHHY2009FR41350

PATIENT
  Sex: Male
  Weight: 108 kg

DRUGS (1)
  1. GLEEVEC [Suspect]
     Indication: GASTROINTESTINAL STROMAL TUMOUR
     Dosage: 400 MG PER DAY
     Route: 048
     Dates: start: 20090811, end: 20090914

REACTIONS (2)
  - AGRANULOCYTOSIS [None]
  - PERITONSILLAR ABSCESS [None]
